FAERS Safety Report 9342855 (Version 4)
Quarter: 2014Q1

REPORT INFORMATION
  Report Type: Spontaneous
  Country: US (occurrence: US)
  Receive Date: 20130611
  Receipt Date: 20140122
  Transmission Date: 20141002
  Serious: Yes (Hospitalization)
  Sender: FDA-Public Use
  Company Number: US-GLAXOSMITHKLINE-A1026182A

PATIENT
  Age: 64 Year
  Sex: Female

DRUGS (1)
  1. ADVAIR [Suspect]
     Indication: RESPIRATORY DISORDER
     Route: 065
     Dates: start: 20100701

REACTIONS (5)
  - Heart transplant [Unknown]
  - Investigation [Unknown]
  - Malaise [Unknown]
  - Adverse event [Not Recovered/Not Resolved]
  - Drug administration error [Unknown]
